FAERS Safety Report 16462876 (Version 1)
Quarter: 2019Q2

REPORT INFORMATION
  Report Type: Spontaneous
  Country: SE (occurrence: SE)
  Receive Date: 20190621
  Receipt Date: 20190621
  Transmission Date: 20190711
  Serious: Yes (Other)
  Sender: FDA-Public Use
  Company Number: SE-BAYER-2019-115834

PATIENT
  Age: 33 Year
  Sex: Female

DRUGS (1)
  1. KYLEENA [Suspect]
     Active Substance: LEVONORGESTREL
     Indication: CONTRACEPTION
     Dosage: 17.5 MCG/24HR, CONT
     Route: 015

REACTIONS (4)
  - Dizziness [Unknown]
  - Headache [Unknown]
  - Pyrexia [Unknown]
  - Migraine [Unknown]

NARRATIVE: CASE EVENT DATE: 2019
